FAERS Safety Report 5383589-8 (Version None)
Quarter: 2007Q3

REPORT INFORMATION
  Report Type: 
  Country: None (occurrence: None)
  Receive Date: 20070706
  Receipt Date: 20070629
  Transmission Date: 20080115
  Serious: Yes (Life-Threatening)
  Sender: FDA-Public Use
  Company Number: 2007-02197

PATIENT
  Age: 68 Year
  Sex: Male
  Weight: 75 kg

DRUGS (3)
  1. VELCADE [Suspect]
     Indication: B-CELL LYMPHOMA
     Dosage: 2.90 MG, INTRAVENOUS
     Route: 042
     Dates: start: 20070105, end: 20070524
  2. METHYLPREDNISOLONE [Concomitant]
  3. FLUCONAZOLE [Concomitant]

REACTIONS (4)
  - CHOLECYSTITIS [None]
  - COAGULOPATHY [None]
  - HISTIOCYTOSIS HAEMATOPHAGIC [None]
  - HYPERCOAGULATION [None]
